FAERS Safety Report 22753507 (Version 7)
Quarter: 2024Q2

REPORT INFORMATION
  Report Type: Spontaneous
  Country: BR (occurrence: BR)
  Receive Date: 20230726
  Receipt Date: 20240530
  Transmission Date: 20240715
  Serious: Yes (Hospitalization, Other)
  Sender: FDA-Public Use
  Company Number: BR-SA-SAC20230725000889

PATIENT
  Age: 20 Month
  Sex: Female
  Weight: 12 kg

DRUGS (8)
  1. SABRIL [Suspect]
     Active Substance: VIGABATRIN
     Indication: Infantile spasms
     Dosage: 1.5 DF (ONE AND A HALF TABLETS)
     Route: 065
     Dates: start: 202301, end: 202307
  2. SABRIL [Suspect]
     Active Substance: VIGABATRIN
     Indication: Epilepsy
     Route: 065
  3. VALPROATE SODIUM [Concomitant]
     Active Substance: VALPROATE SODIUM
     Indication: Epilepsy
     Dosage: UNK, BID
     Route: 065
     Dates: start: 202210
  4. LAMOTRIGINE [Concomitant]
     Active Substance: LAMOTRIGINE
     Indication: Product used for unknown indication
     Dosage: 30 MG, Q12H
     Route: 065
  5. CANNABIDIOL [Concomitant]
     Active Substance: CANNABIDIOL
     Indication: Epilepsy
     Dosage: UNK, BID
     Route: 065
     Dates: start: 202304
  6. MELATONIN [Concomitant]
     Active Substance: MELATONIN
     Indication: Product used for unknown indication
     Dosage: 10 DROPS AT NIGHT.
     Route: 065
  7. APTAMIL [Concomitant]
     Indication: Product used for unknown indication
     Dosage: 170 ML VIA NASOENTERAL TUBE
     Route: 065
  8. APTAMIL [Concomitant]
     Dosage: 100 ML
     Route: 048

REACTIONS (27)
  - Pain [Not Recovered/Not Resolved]
  - Pyrexia [Not Recovered/Not Resolved]
  - Bronchospasm [Unknown]
  - Cough [Recovering/Resolving]
  - Rhinorrhoea [Recovering/Resolving]
  - Lung infiltration [Unknown]
  - Dysphagia [Unknown]
  - Thrombocytosis [Recovering/Resolving]
  - Pneumonia aspiration [Unknown]
  - Gastrooesophageal reflux disease [Unknown]
  - Lung hypoinflation [Recovering/Resolving]
  - Malaise [Unknown]
  - Infantile spasms [Not Recovered/Not Resolved]
  - Condition aggravated [Not Recovered/Not Resolved]
  - Epilepsy [Not Recovered/Not Resolved]
  - Partial seizures [Unknown]
  - Somnolence [Recovering/Resolving]
  - Seizure [Not Recovered/Not Resolved]
  - Poor quality product administered [Not Recovered/Not Resolved]
  - Agitation [Recovering/Resolving]
  - Vomiting [Recovering/Resolving]
  - Irritability [Recovering/Resolving]
  - Oxygen saturation decreased [Unknown]
  - Flatulence [Recovered/Resolved]
  - Crying [Recovering/Resolving]
  - Muscle spasms [Unknown]
  - Insomnia [Unknown]

NARRATIVE: CASE EVENT DATE: 20230101
